FAERS Safety Report 4878064-0 (Version None)
Quarter: 2006Q1

REPORT INFORMATION
  Report Type: 
  Country: None (occurrence: None)
  Receive Date: 20060110
  Receipt Date: 20051227
  Transmission Date: 20060701
  Serious: Yes (Death)
  Sender: FDA-Public Use
  Company Number: 220742

PATIENT
  Age: 3 Year
  Sex: Female

DRUGS (1)
  1. SOMATROPIN (SOMATROPIN) POWDER FOR INJECTION [Suspect]
     Indication: PRADER-WILLI SYNDROME
     Dosage: 0.33 MG/KG, 1/WEEK

REACTIONS (1)
  - DEATH [None]
